FAERS Safety Report 10541541 (Version 1)
Quarter: 2014Q4

REPORT INFORMATION
  Report Type: Spontaneous
  Country: US (occurrence: None)
  Receive Date: 20141010
  Receipt Date: 20141010
  Transmission Date: 20150529
  Serious: No
  Sender: FDA-Public Use
  Company Number: 163-POMAL-14054472

PATIENT
  Age: 79 Year
  Sex: Male
  Weight: 85.19 kg

DRUGS (12)
  1. POMALYST [Suspect]
     Active Substance: POMALIDOMIDE
     Indication: PLASMA CELL MYELOMA
     Dosage: 3 MG,  21 IN 21 D,  PO
     Route: 048
     Dates: start: 201401
  2. DEXAMETHASONE (DEXAMETHASONE) (UNKNOWN) [Concomitant]
     Active Substance: DEXAMETHASONE
  3. GABAPENTIN (GABAPENTIN) (UNKNOWN) (GABAPENTIN) [Concomitant]
     Active Substance: GABAPENTIN
  4. METOPROLOL TARTRATE (METOPROLOL TARTRATE) (UNKNOWN) [Concomitant]
  5. COUMADIN [Concomitant]
     Active Substance: WARFARIN SODIUM
  6. VITAMIN B12 (CYANOCOBALAMIN) (UNKNOWN) [Concomitant]
  7. ACETAMINOPHEN (PARACETAMOL) (UNKNOWN) (PARACETAMOL) [Concomitant]
     Active Substance: ACETAMINOPHEN
  8. BENTYL (DICYCLOVERINE HYDROCHLORIDE) (UNKNOWN) [Concomitant]
  9. LIOTHYRONINE (LIOTHYRONINE) (UNKNOWN) [Concomitant]
  10. COLACE (DOCUSATE SODIUM) (UNKNOWN) [Concomitant]
  11. ONDASETRON (ONDANSETRON) (UNKNOWN) [Concomitant]
  12. ALBUTEROL SULFATE HFA (UNKNOWN) [Concomitant]

REACTIONS (1)
  - Laboratory test abnormal [None]

NARRATIVE: CASE EVENT DATE: 20140512
